FAERS Safety Report 16669724 (Version 1)
Quarter: 2019Q3

REPORT INFORMATION
  Report Type: Report from Study
  Country: FR (occurrence: FR)
  Receive Date: 20190805
  Receipt Date: 20190805
  Transmission Date: 20191004
  Serious: Yes (Hospitalization)
  Sender: FDA-Public Use
  Company Number: FR-PROVELL PHARMACEUTICALS-2072770

PATIENT
  Age: 43 Year
  Sex: Female

DRUGS (2)
  1. TOPLEXIL (OXOMEMAZINE) [Suspect]
     Active Substance: OXOMEMAZINE
  2. EUTHYROX [Suspect]
     Active Substance: LEVOTHYROXINE SODIUM
     Indication: AUTOIMMUNE THYROIDITIS

REACTIONS (6)
  - Neutropenia [None]
  - Alopecia [None]
  - Dizziness [None]
  - Asthenia [None]
  - Hypertension [None]
  - Pain [None]

NARRATIVE: CASE EVENT DATE: 2017
